FAERS Safety Report 12840434 (Version 1)
Quarter: 2016Q4

REPORT INFORMATION
  Report Type: Spontaneous
  Country: US (occurrence: US)
  Receive Date: 20161012
  Receipt Date: 20161012
  Transmission Date: 20170207
  Serious: No
  Sender: FDA-Public Use
  Company Number: US-JUBILANT CADISTA PHARMACEUTICALS-2016JUB00197

PATIENT
  Age: 69 Year
  Sex: Male
  Weight: 54.42 kg

DRUGS (4)
  1. PREDNISONE. [Suspect]
     Active Substance: PREDNISONE
     Indication: GASTROINTESTINAL INFECTION
     Dosage: TAPERING REGIMEN
     Route: 048
     Dates: start: 20160401
  2. PROAIR HFA [Concomitant]
     Active Substance: ALBUTEROL SULFATE
     Dosage: UNK
  3. LEVOFLOXACIN. [Suspect]
     Active Substance: LEVOFLOXACIN
     Indication: GASTROINTESTINAL INFECTION
     Dosage: 750 MG, 1X/DAY
     Route: 048
     Dates: start: 20160401
  4. VENTOLIN HFA [Concomitant]
     Active Substance: ALBUTEROL SULFATE
     Dosage: UNK

REACTIONS (4)
  - Burning sensation [Unknown]
  - Vomiting [Unknown]
  - Sputum discoloured [Unknown]
  - Constipation [Unknown]

NARRATIVE: CASE EVENT DATE: 20160403
